FAERS Safety Report 5518286-9 (Version None)
Quarter: 2007Q4

REPORT INFORMATION
  Report Type: 
  Country: None (occurrence: None)
  Receive Date: 20071115
  Receipt Date: 20071108
  Transmission Date: 20080405
  Serious: Yes (Hospitalization)
  Sender: FDA-Public Use
  Company Number: NO-AVENTIS-200718968GDDC

PATIENT
  Age: 54 Year
  Sex: Male

DRUGS (7)
  1. LANTUS [Suspect]
     Route: 058
     Dates: start: 20060626
  2. INSUMAN RAPID [Concomitant]
     Route: 058
  3. NOVORAPID [Concomitant]
     Route: 058
  4. ASASANTIN                          /00042901/ [Concomitant]
  5. ENALAPRIL MALEATE [Concomitant]
  6. FELODIPINE [Concomitant]
  7. SIMVASTATIN [Concomitant]

REACTIONS (6)
  - DEHYDRATION [None]
  - DIABETIC KETOACIDOSIS [None]
  - DRUG INEFFECTIVE [None]
  - HYPERGLYCAEMIA [None]
  - KETONURIA [None]
  - PHARMACEUTICAL PRODUCT COMPLAINT [None]
